FAERS Safety Report 5001417-7 (Version None)
Quarter: 2006Q2

REPORT INFORMATION
  Report Type: 
  Country: None (occurrence: None)
  Receive Date: 20060512
  Receipt Date: 20051003
  Transmission Date: 20061013
  Serious: Yes (Hospitalization)
  Sender: FDA-Public Use
  Company Number: US-MERCK-0510USA06577

PATIENT
  Age: 62 Year
  Sex: Male
  Weight: 102 kg

DRUGS (6)
  1. VIOXX [Suspect]
     Indication: ARTHRITIS
     Route: 048
     Dates: start: 20000414, end: 20020402
  2. VIOXX [Suspect]
     Route: 048
     Dates: start: 20030116, end: 20040121
  3. VIOXX [Suspect]
     Indication: JOINT STIFFNESS
     Route: 048
     Dates: start: 20000414, end: 20020402
  4. VIOXX [Suspect]
     Route: 048
     Dates: start: 20030116, end: 20040121
  5. CARDURA [Concomitant]
     Route: 048
  6. ASPIRIN [Concomitant]
     Route: 048

REACTIONS (22)
  - ARTERIOSCLEROSIS CORONARY ARTERY [None]
  - BALANCE DISORDER [None]
  - BLOOD PRESSURE DECREASED [None]
  - BRONCHITIS [None]
  - CARDIAC FAILURE [None]
  - CARDIAC PACEMAKER MALFUNCTION [None]
  - CARDIOMEGALY [None]
  - CORONARY ARTERY DISEASE [None]
  - CORONARY ARTERY OCCLUSION [None]
  - CORONARY ARTERY STENOSIS [None]
  - COUGH [None]
  - DIZZINESS [None]
  - DIZZINESS POSTURAL [None]
  - EPISTAXIS [None]
  - FATIGUE [None]
  - HYPERLIPIDAEMIA [None]
  - HYPOKINESIA [None]
  - HYPOVOLAEMIA [None]
  - MALAISE [None]
  - MYOCARDIAL INFARCTION [None]
  - OEDEMA PERIPHERAL [None]
  - WEIGHT INCREASED [None]
